FAERS Safety Report 13129373 (Version 1)
Quarter: 2017Q1

REPORT INFORMATION
  Report Type: Spontaneous
  Country: US (occurrence: US)
  Receive Date: 20170118
  Receipt Date: 20170118
  Transmission Date: 20170428
  Serious: No
  Sender: FDA-Public Use
  Company Number: None

PATIENT
  Age: 68 Year
  Sex: Female
  Weight: 84.9 kg

DRUGS (1)
  1. ULTRAVIST [Suspect]
     Active Substance: IOPROMIDE
     Indication: BREAST CANCER
     Route: 042
     Dates: start: 20161101

REACTIONS (4)
  - Infusion related reaction [None]
  - Nausea [None]
  - Throat tightness [None]
  - Contrast media reaction [None]

NARRATIVE: CASE EVENT DATE: 20161118
